FAERS Safety Report 9916928 (Version 1)
Quarter: 2014Q1

REPORT INFORMATION
  Report Type: Spontaneous
  Country: JP (occurrence: JP)
  Receive Date: 20140221
  Receipt Date: 20140221
  Transmission Date: 20141002
  Serious: Yes (Other)
  Sender: FDA-Public Use
  Company Number: JP-PFIZER INC-2014046299

PATIENT
  Age: 53 Year
  Sex: Female

DRUGS (3)
  1. NASANYL [Suspect]
     Dosage: UNK
     Route: 045
     Dates: start: 2008
  2. NASANYL [Suspect]
     Dosage: UNK
     Route: 045
     Dates: end: 201303
  3. NASANYL [Suspect]
     Dosage: UNK
     Route: 045
     Dates: start: 20140204

REACTIONS (4)
  - Interstitial lung disease [Unknown]
  - Laryngeal haemorrhage [Unknown]
  - Metrorrhagia [Unknown]
  - Abdominal pain [Unknown]
